FAERS Safety Report 8148712 (Version 5)
Quarter: 2013Q1

REPORT INFORMATION
  Report Type: Spontaneous
  Country: US (occurrence: US)
  Receive Date: 20110922
  Receipt Date: 20130211
  Transmission Date: 20140127
  Serious: Yes (Hospitalization, Other)
  Sender: FDA-Public Use
  Company Number: US-ASTRAZENECA-2010SE50934

PATIENT
  Age: 51 Year
  Sex: Male
  Weight: 90.7 kg

DRUGS (28)
  1. SEROQUEL XR [Suspect]
     Indication: PSYCHOTIC DISORDER
     Route: 048
     Dates: start: 2003, end: 2006
  2. SEROQUEL XR [Suspect]
     Indication: HALLUCINATION, VISUAL
     Route: 048
     Dates: start: 2003, end: 2006
  3. SEROQUEL XR [Suspect]
     Indication: HALLUCINATION, AUDITORY
     Route: 048
     Dates: start: 2003, end: 2006
  4. SEROQUEL XR [Suspect]
     Indication: SCHIZOPHRENIA
     Route: 048
     Dates: start: 2003, end: 2006
  5. SEROQUEL XR [Suspect]
     Indication: PSYCHOTIC DISORDER
     Route: 048
     Dates: start: 2006, end: 2009
  6. SEROQUEL XR [Suspect]
     Indication: HALLUCINATION, VISUAL
     Route: 048
     Dates: start: 2006, end: 2009
  7. SEROQUEL XR [Suspect]
     Indication: HALLUCINATION, AUDITORY
     Route: 048
     Dates: start: 2006, end: 2009
  8. SEROQUEL XR [Suspect]
     Indication: SCHIZOPHRENIA
     Route: 048
     Dates: start: 2006, end: 2009
  9. SEROQUEL XR [Suspect]
     Indication: PSYCHOTIC DISORDER
     Route: 048
     Dates: start: 2006
  10. SEROQUEL XR [Suspect]
     Indication: HALLUCINATION, VISUAL
     Route: 048
     Dates: start: 2006
  11. SEROQUEL XR [Suspect]
     Indication: HALLUCINATION, AUDITORY
     Route: 048
     Dates: start: 2006
  12. SEROQUEL XR [Suspect]
     Indication: SCHIZOPHRENIA
     Route: 048
     Dates: start: 2006
  13. SEROQUEL XR [Suspect]
     Indication: PSYCHOTIC DISORDER
     Route: 048
     Dates: start: 2009, end: 20130203
  14. SEROQUEL XR [Suspect]
     Indication: HALLUCINATION, VISUAL
     Route: 048
     Dates: start: 2009, end: 20130203
  15. SEROQUEL XR [Suspect]
     Indication: HALLUCINATION, AUDITORY
     Route: 048
     Dates: start: 2009, end: 20130203
  16. SEROQUEL XR [Suspect]
     Indication: SCHIZOPHRENIA
     Route: 048
     Dates: start: 2009, end: 20130203
  17. SEROQUEL XR [Suspect]
     Indication: PSYCHOTIC DISORDER
     Route: 048
     Dates: start: 20130204
  18. SEROQUEL XR [Suspect]
     Indication: HALLUCINATION, VISUAL
     Route: 048
     Dates: start: 20130204
  19. SEROQUEL XR [Suspect]
     Indication: HALLUCINATION, AUDITORY
     Route: 048
     Dates: start: 20130204
  20. SEROQUEL XR [Suspect]
     Indication: SCHIZOPHRENIA
     Route: 048
     Dates: start: 20130204
  21. SEROQUEL XR [Suspect]
     Indication: PSYCHOTIC DISORDER
     Route: 048
  22. SEROQUEL XR [Suspect]
     Indication: HALLUCINATION, VISUAL
     Route: 048
  23. SEROQUEL XR [Suspect]
     Indication: HALLUCINATION, AUDITORY
     Route: 048
  24. SEROQUEL XR [Suspect]
     Indication: SCHIZOPHRENIA
     Route: 048
  25. KLONOPIN [Concomitant]
     Indication: SCHIZOPHRENIA
     Route: 048
     Dates: start: 1999
  26. ZIAC [Concomitant]
     Indication: HYPERTENSION
     Route: 048
     Dates: start: 2006
  27. BETA BLOCKER [Concomitant]
  28. HALDOL [Concomitant]

REACTIONS (14)
  - Intentional overdose [Unknown]
  - Loss of consciousness [Unknown]
  - Psychotic disorder [Unknown]
  - Diabetes mellitus [Unknown]
  - Chest pain [Unknown]
  - Weight decreased [Unknown]
  - Middle insomnia [Unknown]
  - Anxiety [Unknown]
  - Nervousness [Unknown]
  - Abnormal behaviour [Unknown]
  - Somnolence [Unknown]
  - Blood triglycerides increased [Unknown]
  - Dizziness [Unknown]
  - Intentional drug misuse [Unknown]
